FAERS Safety Report 4536033-4 (Version None)
Quarter: 2004Q4

REPORT INFORMATION
  Report Type: 
  Country: None (occurrence: None)
  Receive Date: 20041216
  Receipt Date: 20040707
  Transmission Date: 20050328
  Serious: Yes (Hospitalization)
  Sender: FDA-Public Use
  Company Number: HQWYE943908JUL04

PATIENT
  Age: 80 Year
  Sex: Male
  Weight: 78.54 kg

DRUGS (8)
  1. EFFEXOR XR [Suspect]
     Indication: OBSESSIVE-COMPULSIVE PERSONALITY DISORDER
     Dosage: SEE IMAGE
     Route: 048
     Dates: start: 20040101, end: 20040703
  2. EFFEXOR XR [Suspect]
     Indication: OBSESSIVE-COMPULSIVE PERSONALITY DISORDER
     Dosage: SEE IMAGE
     Route: 048
     Dates: start: 20040707
  3. WELCHOL [Concomitant]
  4. ZETIA [Concomitant]
  5. ATENOLOL [Concomitant]
  6. CELEBREX [Concomitant]
  7. ACETYLSALICYLIC ACID SRT [Concomitant]
  8. OMEGA 3 (FISH OIL) [Concomitant]

REACTIONS (3)
  - CEREBROVASCULAR ACCIDENT [None]
  - DRUG WITHDRAWAL SYNDROME [None]
  - FATIGUE [None]
